FAERS Safety Report 4386254-9 (Version None)
Quarter: 2004Q2

REPORT INFORMATION
  Report Type: 
  Country: None (occurrence: None)
  Receive Date: 20040628
  Receipt Date: 20040628
  Transmission Date: 20050107
  Serious: Yes (Other)
  Sender: FDA-Public Use
  Company Number: None

PATIENT
  Age: 17 Year
  Sex: Female
  Weight: 54.4316 kg

DRUGS (2)
  1. ABILIFY [Suspect]
     Indication: BIPOLAR DISORDER
     Dosage: 10 MG DAILY
     Dates: start: 20040422, end: 20040512
  2. ZOLOFT [Concomitant]

REACTIONS (2)
  - CONDUCTION DISORDER [None]
  - ELECTROCARDIOGRAM PR PROLONGATION [None]
